FAERS Safety Report 11830791 (Version 2)
Quarter: 2016Q1

REPORT INFORMATION
  Report Type: Spontaneous
  Country: US (occurrence: US)
  Receive Date: 20151214
  Receipt Date: 20160113
  Transmission Date: 20160525
  Serious: Yes (Other)
  Sender: FDA-Public Use
  Company Number: US-BEH-2015056655

PATIENT
  Sex: Female
  Weight: 17 kg

DRUGS (6)
  1. HIZENTRA [Suspect]
     Active Substance: HUMAN IMMUNOGLOBULIN G
     Indication: HYPOGAMMAGLOBULINAEMIA
     Dosage: ??-???-2014
     Route: 058
  2. ACETAMINOPHEN. [Concomitant]
     Active Substance: ACETAMINOPHEN
  3. DIPHENHYDRAMINE. [Concomitant]
     Active Substance: DIPHENHYDRAMINE
  4. HIZENTRA [Suspect]
     Active Substance: HUMAN IMMUNOGLOBULIN G
     Indication: HYPOGAMMAGLOBULINAEMIA
     Dosage: ??-???-2014
     Route: 058
  5. LIDOCAINE. [Concomitant]
     Active Substance: LIDOCAINE
  6. EPIPEN JR [Concomitant]
     Active Substance: EPINEPHRINE

REACTIONS (2)
  - Pneumonia [Recovered/Resolved]
  - Ear infection [Recovered/Resolved]
